FAERS Safety Report 15962647 (Version 1)
Quarter: 2019Q1

REPORT INFORMATION
  Report Type: Spontaneous
  Country: US (occurrence: US)
  Receive Date: 20190214
  Receipt Date: 20190214
  Transmission Date: 20190417
  Serious: No
  Sender: FDA-Public Use
  Company Number: US-BAUSCH-BL-2019-002389

PATIENT
  Sex: Female

DRUGS (1)
  1. PROPARACAINE HYDROCHLORIDE OPHTHALMIC SOLUTION USP 0.5% [Suspect]
     Active Substance: PROPARACAINE HYDROCHLORIDE
     Indication: EYE OPERATION
     Route: 047
     Dates: start: 201608

REACTIONS (5)
  - Headache [Unknown]
  - Ocular hyperaemia [Unknown]
  - Eye pain [Unknown]
  - Visual impairment [Unknown]
  - Eye irritation [Not Recovered/Not Resolved]

NARRATIVE: CASE EVENT DATE: 201608
